FAERS Safety Report 13775692 (Version 1)
Quarter: 2017Q3

REPORT INFORMATION
  Report Type: Spontaneous
  Country: US (occurrence: US)
  Receive Date: 20170720
  Receipt Date: 20170720
  Transmission Date: 20171127
  Serious: Yes (Other)
  Sender: FDA-Public Use
  Company Number: US-009507513-1707USA004950

PATIENT
  Sex: Female
  Weight: 99.77 kg

DRUGS (1)
  1. NEXPLANON [Suspect]
     Active Substance: ETONOGESTREL
     Indication: CONTRACEPTION
     Dosage: 3 YEAR IMPLANT (IMPLANT IN LEFT ARM)
     Route: 065
     Dates: start: 20160825

REACTIONS (10)
  - Unintended pregnancy [Unknown]
  - Abdominal discomfort [Unknown]
  - Dyspnoea [Unknown]
  - Decreased appetite [Unknown]
  - Pregnancy on contraceptive [Unknown]
  - Abdominal distension [Unknown]
  - Chest pain [Unknown]
  - Fatigue [Unknown]
  - Dizziness [Unknown]
  - Peripheral swelling [Unknown]
